FAERS Safety Report 24995298 (Version 1)
Quarter: 2025Q1

REPORT INFORMATION
  Report Type: Spontaneous
  Country: US (occurrence: None)
  Receive Date: 20250221
  Receipt Date: 20250221
  Transmission Date: 20250408
  Serious: Yes (Other)
  Sender: FDA-CTU
  Company Number: None

PATIENT
  Age: 75 Year
  Sex: Female
  Weight: 57.2 kg

DRUGS (1)
  1. TALQUETAMAB [Suspect]
     Active Substance: TALQUETAMAB
     Indication: Plasma cell myeloma
     Dates: start: 20250219, end: 20250219

REACTIONS (3)
  - Cytokine release syndrome [None]
  - Hypoxia [None]
  - Hypotension [None]

NARRATIVE: CASE EVENT DATE: 20250221
